FAERS Safety Report 4816617-6 (Version None)
Quarter: 2005Q4

REPORT INFORMATION
  Report Type: 
  Country: None (occurrence: None)
  Receive Date: 20051031
  Receipt Date: 20051031
  Transmission Date: 20060501
  Serious: Yes (Hospitalization)
  Sender: FDA-Public Use
  Company Number: None

PATIENT
  Age: 84 Year
  Sex: Female
  Weight: 75 kg

DRUGS (3)
  1. ADENOSCAN [Suspect]
     Indication: CARDIAC STRESS TEST
     Dosage: 63MG IV INFUSION
     Route: 042
     Dates: start: 20051025
  2. MYOVIEW [Suspect]
     Indication: RADIOISOTOPE SCAN
     Dosage: 29.8 MCI
  3. NITROGLYCERIN [Concomitant]

REACTIONS (5)
  - CHEST PAIN [None]
  - DYSPNOEA [None]
  - ELECTROCARDIOGRAM CHANGE [None]
  - FLATULENCE [None]
  - HYPOAESTHESIA [None]
